FAERS Safety Report 8794703 (Version 1)
Quarter: 2012Q4

REPORT INFORMATION
  Report Type: 
  Country: US (occurrence: US)
  Receive Date: 20120917
  Receipt Date: 20120917
  Transmission Date: 20130627
  Serious: No
  Sender: FDA-Public Use
  Company Number: US-ASTRAZENECA-2012SE69872

PATIENT
  Age: 48 Year
  Sex: Female
  Weight: 65.8 kg

DRUGS (5)
  1. SYMBICORT [Suspect]
     Dosage: 160 MCG.2 BID
     Route: 055
     Dates: start: 201110, end: 20120801
  2. SYMBICORT [Suspect]
     Dosage: EXTRA SPRAY (three spray total)
     Route: 055
     Dates: start: 20120824
  3. LISINOPRIL [Concomitant]
     Indication: HYPERTENSION
     Route: 048
     Dates: start: 2010
  4. CLONIDINE [Concomitant]
     Indication: BLOOD PRESSURE
     Route: 048
     Dates: start: 2008
  5. ADVAIR [Concomitant]

REACTIONS (2)
  - Wheezing [Unknown]
  - Intentional drug misuse [Unknown]
